FAERS Safety Report 14193539 (Version 2)
Quarter: 2017Q4

REPORT INFORMATION
  Report Type: Report from Study
  Country: IT (occurrence: IT)
  Receive Date: 20171115
  Receipt Date: 20171215
  Transmission Date: 20180321
  Serious: Yes (Other)
  Sender: FDA-Public Use
  Company Number: IT-MYLANLABS-2017M1071626

PATIENT
  Age: 40 Year
  Sex: Male

DRUGS (2)
  1. PAFINUR [Concomitant]
     Indication: PRODUCT USED FOR UNKNOWN INDICATION
  2. BRUFEN [Suspect]
     Active Substance: IBUPROFEN
     Indication: PRODUCT USED FOR UNKNOWN INDICATION
     Dosage: 1 DF, TOTAL
     Route: 048
     Dates: start: 20170715, end: 20170715

REACTIONS (3)
  - Drug hypersensitivity [Unknown]
  - Angioedema [Unknown]
  - Localised oedema [Unknown]

NARRATIVE: CASE EVENT DATE: 20170715
